FAERS Safety Report 15586688 (Version 1)
Quarter: 2018Q4

REPORT INFORMATION
  Report Type: Spontaneous
  Country: US (occurrence: US)
  Receive Date: 20181105
  Receipt Date: 20181105
  Transmission Date: 20190205
  Serious: Yes (Life-Threatening, Disabling)
  Sender: FDA-Public Use
  Company Number: None

PATIENT
  Age: 36 Year
  Sex: Male
  Weight: 105.75 kg

DRUGS (4)
  1. RISPERDAL [Suspect]
     Active Substance: RISPERIDONE
  2. FLUPHENAZINE [Suspect]
     Active Substance: FLUPHENAZINE
  3. OLANZAPINE. [Suspect]
     Active Substance: OLANZAPINE
  4. HALOPERIDOL. [Suspect]
     Active Substance: HALOPERIDOL
     Indication: SCHIZOPHRENIA
     Dates: start: 20180528, end: 20180621

REACTIONS (2)
  - Asthenia [None]
  - Drug effect incomplete [None]

NARRATIVE: CASE EVENT DATE: 20180528
